FAERS Safety Report 14304506 (Version 1)
Quarter: 2017Q4

REPORT INFORMATION
  Report Type: Spontaneous
  Country: JP (occurrence: JP)
  Receive Date: 20171219
  Receipt Date: 20171219
  Transmission Date: 20180321
  Serious: Yes (Other)
  Sender: FDA-Public Use
  Company Number: JP-OTSUKA-008711

PATIENT
  Age: 70 Year
  Sex: Female

DRUGS (8)
  1. EVAMYL [Concomitant]
     Active Substance: LORMETAZEPAM
     Route: 048
  2. ABILIFY [Suspect]
     Active Substance: ARIPIPRAZOLE
     Indication: SCHIZOPHRENIA
     Dosage: 3 MG, BID
     Route: 048
     Dates: start: 20090405, end: 20090702
  3. ATORVASTATIN [Concomitant]
     Active Substance: ATORVASTATIN
     Dosage: TABS
  4. LIPITOR [Concomitant]
     Active Substance: ATORVASTATIN CALCIUM
     Route: 048
  5. VOGLIDASE [Concomitant]
     Indication: DIABETES MELLITUS
     Route: 048
  6. AMOBAN [Concomitant]
     Active Substance: ZOPICLONE
     Route: 048
  7. ABILIFY [Suspect]
     Active Substance: ARIPIPRAZOLE
     Dosage: 6 MG, BID
     Route: 048
     Dates: start: 20090703, end: 20100205
  8. ZOPICLONE [Concomitant]
     Active Substance: ZOPICLONE
     Dosage: TABS

REACTIONS (1)
  - Blood glucose increased [Recovered/Resolved]

NARRATIVE: CASE EVENT DATE: 20100120
